FAERS Safety Report 14542931 (Version 5)
Quarter: 2018Q3

REPORT INFORMATION
  Report Type: Spontaneous
  Country: FR (occurrence: FR)
  Receive Date: 20180216
  Receipt Date: 20180709
  Transmission Date: 20181010
  Serious: Yes (Other)
  Sender: FDA-Public Use
  Company Number: FR-MYLANLABS-2018M1010058

PATIENT
  Age: 46 Year
  Sex: Female

DRUGS (2)
  1. LYNPARZA [Interacting]
     Active Substance: OLAPARIB
     Indication: OVARIAN CANCER
     Dosage: 800 MG, QD
     Route: 048
     Dates: start: 20171227
  2. OMEPRAZOLE. [Suspect]
     Active Substance: OMEPRAZOLE
     Indication: PRODUCT USED FOR UNKNOWN INDICATION
     Dosage: UNK
     Route: 048

REACTIONS (9)
  - Urticaria [Recovering/Resolving]
  - Throat irritation [Not Recovered/Not Resolved]
  - Oedema [Recovered/Resolved]
  - Restless legs syndrome [Recovering/Resolving]
  - Pruritus generalised [Recovering/Resolving]
  - Fatigue [Not Recovered/Not Resolved]
  - Drug interaction [Not Recovered/Not Resolved]
  - Thrombocytopenia [Not Recovered/Not Resolved]
  - Implant site reaction [Not Recovered/Not Resolved]

NARRATIVE: CASE EVENT DATE: 20171228
